FAERS Safety Report 8744149 (Version 4)
Quarter: 2012Q4

REPORT INFORMATION
  Report Type: 
  Country: US (occurrence: US)
  Receive Date: 20120824
  Receipt Date: 20121031
  Transmission Date: 20130627
  Serious: Yes (Hospitalization)
  Sender: FDA-Public Use
  Company Number: US-ASTRAZENECA-2012SE59924

PATIENT
  Age: 52 Year
  Sex: Female

DRUGS (2)
  1. SYMBICORT PMDI [Suspect]
     Dosage: UNKNOWN FREQUENCY
     Route: 055
  2. SPIRIVA [Concomitant]

REACTIONS (7)
  - Pneumonia [Unknown]
  - Vital functions abnormal [Unknown]
  - Oxygen saturation decreased [Unknown]
  - Malaise [Unknown]
  - Memory impairment [Unknown]
  - Sinusitis [Unknown]
  - Limb discomfort [Unknown]
